FAERS Safety Report 8046682-7 (Version None)
Quarter: 2012Q1

REPORT INFORMATION
  Report Type: 
  Country: None (occurrence: None)
  Receive Date: 20120116
  Receipt Date: 20120104
  Transmission Date: 20120608
  Serious: Yes (Other)
  Sender: FDA-Public Use
  Company Number: IT-BRISTOL-MYERS SQUIBB COMPANY-16331738

PATIENT
  Age: 45 Year
  Sex: Male

DRUGS (3)
  1. EPIVIR [Concomitant]
     Dosage: FORMULATION:EPIVIR 300 MG TABS
     Route: 048
  2. REYATAZ [Suspect]
     Dates: start: 20090201, end: 20110930
  3. NORVIR [Concomitant]
     Dosage: FORMULATION:NORVIR 100 MG SOFT CAPS
     Route: 048

REACTIONS (2)
  - JAUNDICE [None]
  - HYPOPHOSPHATAEMIA [None]
